FAERS Safety Report 4517946-6 (Version None)
Quarter: 2004Q4

REPORT INFORMATION
  Report Type: 
  Country: None (occurrence: None)
  Receive Date: 20041130
  Receipt Date: 20041116
  Transmission Date: 20050328
  Serious: Yes (Congenital Anomaly)
  Sender: FDA-Public Use
  Company Number: B0357573A

PATIENT
  Age: 23 Month
  Sex: Male
  Weight: 14.4697 kg

DRUGS (4)
  1. IMITREX [Suspect]
     Dosage: 100 MG WEEKLY TRANSPLACENTARY
     Route: 064
  2. BISOPROLOL (BISOPROLOL) [Suspect]
     Dosage: 5 MG PER DAY TRANSPLACENTARY
     Route: 064
  3. NAPROXEN [Suspect]
     Dosage: 550 MG TWO TIMES PER WEEK TRANSP
     Route: 064
  4. PARACETAMOL [Concomitant]

REACTIONS (10)
  - BREECH PRESENTATION [None]
  - CAESAREAN SECTION [None]
  - CLEFT LIP [None]
  - CLEFT PALATE [None]
  - CONGENITAL FOOT MALFORMATION [None]
  - CONGENITAL NOSE MALFORMATION [None]
  - DRUG EXPOSURE DURING PREGNANCY [None]
  - FACIAL DYSMORPHISM [None]
  - HYPERTELORISM OF ORBIT [None]
  - PARESIS [None]
